FAERS Safety Report 23023577 (Version 1)
Quarter: 2023Q4

REPORT INFORMATION
  Report Type: Report from Study
  Country: KR (occurrence: KR)
  Receive Date: 20231003
  Receipt Date: 20231003
  Transmission Date: 20240109
  Serious: No
  Sender: FDA-Public Use
  Company Number: KR-JNJFOC-20230963673

PATIENT

DRUGS (1)
  1. TOPAMAX [Suspect]
     Active Substance: TOPIRAMATE
     Indication: Epilepsy
     Route: 048

REACTIONS (1)
  - Hyperammonaemia [Unknown]
